FAERS Safety Report 7850097-1 (Version None)
Quarter: 2011Q4

REPORT INFORMATION
  Report Type: 
  Country: None (occurrence: None)
  Receive Date: 20111026
  Receipt Date: 20111018
  Transmission Date: 20120403
  Serious: Yes (Hospitalization)
  Sender: FDA-Public Use
  Company Number: US-ASTELLAS-2011US006796

PATIENT
  Age: 63 Year
  Sex: Female
  Weight: 56 kg

DRUGS (4)
  1. FLUORINE-18 2-FLUORO-2-DEOXY-D-GLUCOSE [Suspect]
     Indication: PRODUCT USED FOR UNKNOWN INDICATION
     Dosage: 15.5 MCI, UNKNOWN/D
     Route: 065
     Dates: end: 20110914
  2. ERLOTINIB HYDROCHLORIDE [Suspect]
     Indication: ADENOCARCINOMA PANCREAS
     Dosage: 150 MG, UID/QD
     Route: 048
     Dates: start: 20110918, end: 20110926
  3. GDC-0449 [Suspect]
     Indication: ADENOCARCINOMA PANCREAS
     Dosage: 150 MG, UID/QD
     Route: 048
     Dates: start: 20110918, end: 20110926
  4. CHEMOTHERAPEUTICS NOS [Suspect]
     Indication: PRODUCT USED FOR UNKNOWN INDICATION
     Dosage: UNK
     Route: 065

REACTIONS (4)
  - INCORRECT DOSE ADMINISTERED [None]
  - DISEASE PROGRESSION [None]
  - PULMONARY EMBOLISM [None]
  - DEEP VEIN THROMBOSIS [None]
